FAERS Safety Report 13756117 (Version 1)
Quarter: 2017Q3

REPORT INFORMATION
  Report Type: Spontaneous
  Country: SE (occurrence: SE)
  Receive Date: 20170714
  Receipt Date: 20170714
  Transmission Date: 20171127
  Serious: Yes (Other)
  Sender: FDA-Public Use
  Company Number: SE-TEVA-785966ISR

PATIENT
  Age: 23 Year
  Sex: Male

DRUGS (2)
  1. NORPROLAC [Interacting]
     Active Substance: QUINAGOLIDE HYDROCHLORIDE
     Route: 065
  2. LEVETIRACETAM. [Suspect]
     Active Substance: LEVETIRACETAM
     Route: 065

REACTIONS (4)
  - Blood prolactin increased [Recovered/Resolved]
  - Drug level decreased [Recovered/Resolved]
  - Drug interaction [Recovered/Resolved]
  - Drug ineffective [Recovered/Resolved]
